FAERS Safety Report 21124805 (Version 1)
Quarter: 2022Q3

REPORT INFORMATION
  Report Type: Spontaneous
  Country: US (occurrence: None)
  Receive Date: 20220722
  Receipt Date: 20220722
  Transmission Date: 20221027
  Serious: No
  Sender: FDA-Public Use
  Company Number: None

PATIENT
  Sex: Female

DRUGS (1)
  1. PIRFENIDONE [Suspect]
     Active Substance: PIRFENIDONE
     Indication: Idiopathic pulmonary fibrosis
     Dosage: FREQUENCY : 3 TIMES A DAY;?
     Route: 048
     Dates: start: 202205

REACTIONS (7)
  - Somnolence [None]
  - Nausea [None]
  - Diarrhoea [None]
  - Abdominal pain upper [None]
  - Feeling abnormal [None]
  - Multiple allergies [None]
  - Cough [None]
